FAERS Safety Report 9382956 (Version 1)
Quarter: 2013Q3

REPORT INFORMATION
  Report Type: Spontaneous
  Country: JP (occurrence: JP)
  Receive Date: 20130703
  Receipt Date: 20130703
  Transmission Date: 20140515
  Serious: Yes (Hospitalization)
  Sender: FDA-Public Use
  Company Number: JP-B.I. PHARMACEUTICALS,INC./RIDGEFIELD-2013-BI-18504NB

PATIENT
  Age: 76 Year
  Sex: Female

DRUGS (1)
  1. MOBIC [Suspect]
     Dosage: 10 MG
     Route: 065

REACTIONS (2)
  - Knee operation [Unknown]
  - Hepatic function abnormal [Unknown]
